FAERS Safety Report 8087732-1 (Version None)
Quarter: 2012Q1

REPORT INFORMATION
  Report Type: 
  Country: None (occurrence: None)
  Receive Date: 20120128
  Receipt Date: 20110421
  Transmission Date: 20120608
  Serious: No
  Sender: FDA-Public Use
  Company Number: US-ABBOTT-11P-163-0721158-00

PATIENT
  Age: 43 Year
  Sex: Female

DRUGS (3)
  1. HUMIRA [Suspect]
     Indication: COLITIS ULCERATIVE
     Dates: start: 20090701
  2. ZOLOFT [Concomitant]
     Indication: PANIC ATTACK
  3. LIALDA [Concomitant]
     Indication: COLITIS ULCERATIVE

REACTIONS (8)
  - PRODUCTIVE COUGH [None]
  - PYREXIA [None]
  - INFLUENZA LIKE ILLNESS [None]
  - RESPIRATORY TRACT CONGESTION [None]
  - PAIN [None]
  - CONDITION AGGRAVATED [None]
  - INFLAMMATION [None]
  - PANIC ATTACK [None]
